FAERS Safety Report 6056788-X (Version None)
Quarter: 2009Q1

REPORT INFORMATION
  Report Type: 
  Country: None (occurrence: None)
  Receive Date: 20090129
  Receipt Date: 20090115
  Transmission Date: 20090719
  Serious: Yes (Other)
  Sender: FDA-Public Use
  Company Number: US-CELGENEUS-163-21880-07041092

PATIENT
  Sex: Female

DRUGS (5)
  1. REVLIMID [Suspect]
     Indication: MULTIPLE MYELOMA
     Route: 048
     Dates: start: 20080806
  2. REVLIMID [Suspect]
     Route: 048
     Dates: start: 20071011, end: 20080201
  3. REVLIMID [Suspect]
     Route: 048
     Dates: start: 20070508, end: 20070601
  4. REVLIMID [Suspect]
     Route: 048
     Dates: start: 20070315
  5. REVLIMID [Suspect]
     Route: 048
     Dates: start: 20061222, end: 20070301

REACTIONS (1)
  - BLOOD HUMAN CHORIONIC GONADOTROPIN INCREASED [None]
